FAERS Safety Report 6805941-3 (Version None)
Quarter: 2010Q2

REPORT INFORMATION
  Report Type: 
  Country: None (occurrence: None)
  Receive Date: 20100629
  Receipt Date: 20071130
  Transmission Date: 20101027
  Serious: Yes (Hospitalization, Other)
  Sender: FDA-Public Use
  Company Number: US-PFIZER INC-2007101761

PATIENT
  Sex: Male
  Weight: 109.09 kg

DRUGS (3)
  1. ARTHROTEC [Suspect]
     Indication: ARTHRITIS
     Dates: start: 20050101, end: 20070301
  2. ANTIHYPERTENSIVES [Concomitant]
  3. DRUG USED IN DIABETES [Concomitant]

REACTIONS (2)
  - INTERVERTEBRAL DISC DISORDER [None]
  - ISCHAEMIC STROKE [None]
